FAERS Safety Report 16341954 (Version 2)
Quarter: 2019Q2

REPORT INFORMATION
  Report Type: Report from Study
  Country: GB (occurrence: GB)
  Receive Date: 20190522
  Receipt Date: 20190619
  Transmission Date: 20190711
  Serious: Yes (Other)
  Sender: FDA-Public Use
  Company Number: GB-TEVA-2019-GB-1054191

PATIENT
  Sex: Female

DRUGS (1)
  1. COPAXONE [Suspect]
     Active Substance: GLATIRAMER ACETATE
     Indication: PRODUCT USED FOR UNKNOWN INDICATION
     Dosage: PRE-FILLED SYRINGE
     Route: 058
     Dates: start: 20170802

REACTIONS (2)
  - Escherichia infection [Unknown]
  - Infection [Unknown]
